FAERS Safety Report 9349094 (Version 3)
Quarter: 2013Q3

REPORT INFORMATION
  Report Type: Spontaneous
  Country: US (occurrence: US)
  Receive Date: 20130614
  Receipt Date: 20130805
  Transmission Date: 20140515
  Serious: No
  Sender: FDA-Public Use
  Company Number: US-PFIZER INC-2013178751

PATIENT
  Age: 61 Year
  Sex: Male
  Weight: 91.16 kg

DRUGS (9)
  1. GABAPENTIN [Suspect]
     Indication: NEURALGIA
     Dosage: UNK
  2. LYRICA [Suspect]
     Indication: HEADACHE
     Dosage: 100 MG, UNK
     Dates: start: 201305
  3. LYRICA [Suspect]
     Dosage: 50 MG, UNK
  4. GABAPENTIN [Suspect]
     Indication: HEADACHE
     Dosage: 100 MG, 2X/DAY
     Dates: start: 2013
  5. DIAZEPAM [Concomitant]
     Indication: SLEEP DISORDER
     Dosage: 10MG DAILY
  6. VENLAFAXINE [Concomitant]
     Dosage: 75MG DAILY
  7. KLONOPIN [Concomitant]
     Dosage: UNKNOWN DOSE BY SPLITTING 200MG TABLET INTO HALF DAILY
     Route: 048
  8. HYDROCODONE [Concomitant]
     Indication: HEADACHE
     Dosage: 10 MG, UNK
  9. ACETAMINOPHEN [Concomitant]
     Dosage: 500 MG, AS NEEDED

REACTIONS (3)
  - Off label use [Unknown]
  - Drug ineffective for unapproved indication [Unknown]
  - Blood cholesterol increased [Unknown]
